FAERS Safety Report 10420559 (Version 1)
Quarter: 2014Q2

REPORT INFORMATION
  Report Type: Spontaneous
  Country: US (occurrence: None)
  Receive Date: 20140627
  Receipt Date: 20140627
  Transmission Date: 20141212
  Serious: Yes (Other)
  Sender: FDA-Public Use
  Company Number: PHEH2013US010723

PATIENT
  Age: 60 Year
  Sex: Female

DRUGS (6)
  1. VALSARTAN + HCT (VALSARTAN, HYDROCHLOROTHIAZIDE) UNKNOWN [Suspect]
  2. BENICAR (OLMESARTAN MEDOXOMIL) [Suspect]
  3. TEKTURNA HCT (ALISKIREN FUMARATE, HYDROCHLOROTHIAZIDE) [Concomitant]
  4. PREDNISONE [Concomitant]
  5. ADVAIR (FLUTICASONE PROPIONATE, SALMETEROL XINAFOATE) [Concomitant]
  6. SINGULAIR (MONTELUKAST) [Concomitant]

REACTIONS (2)
  - Hypertension [None]
  - Malaise [None]
